FAERS Safety Report 5031233-1 (Version None)
Quarter: 2006Q2

REPORT INFORMATION
  Report Type: 
  Country: None (occurrence: None)
  Receive Date: 20060621
  Receipt Date: 20060508
  Transmission Date: 20061013
  Serious: No
  Sender: FDA-Public Use
  Company Number: US-GLAXOSMITHKLINE-A0604658A

PATIENT
  Age: 69 Year
  Sex: Female

DRUGS (4)
  1. AVANDARYL [Suspect]
     Dosage: 4MG PER DAY
     Route: 048
     Dates: start: 20060301, end: 20060501
  2. HYDROCHIDE [Concomitant]
  3. ZYRTEC [Concomitant]
  4. AMBIEN [Concomitant]

REACTIONS (4)
  - BACK PAIN [None]
  - DRUG INEFFECTIVE [None]
  - HEADACHE [None]
  - WEIGHT INCREASED [None]
